FAERS Safety Report 9471585 (Version 1)
Quarter: 2013Q3

REPORT INFORMATION
  Report Type: Spontaneous
  Country: US (occurrence: US)
  Receive Date: 20130822
  Receipt Date: 20130822
  Transmission Date: 20140515
  Serious: No
  Sender: FDA-Public Use
  Company Number: US-009507513-1308USA007341

PATIENT
  Sex: 0
  Weight: 52.61 kg

DRUGS (1)
  1. IMPLANON [Suspect]
     Dosage: 1 ROD
     Route: 059
     Dates: start: 201208

REACTIONS (2)
  - Device breakage [Unknown]
  - No adverse event [Unknown]
